FAERS Safety Report 5127154-6 (Version None)
Quarter: 2006Q4

REPORT INFORMATION
  Report Type: 
  Country: None (occurrence: None)
  Receive Date: 20061010
  Receipt Date: 20060927
  Transmission Date: 20070319
  Serious: Yes (Other)
  Sender: FDA-Public Use
  Company Number: 2006110810

PATIENT
  Age: 73 Year
  Sex: Female
  Weight: 76 kg

DRUGS (11)
  1. LYRICA [Suspect]
     Indication: SJOGREN'S SYNDROME
     Dosage: 75 MG (75 MG, 1 IN 1 D)
     Dates: start: 20060807, end: 20060809
  2. AMITRIPTYLINE HYDROCHLORIDE [Concomitant]
  3. KETAMINE HCL [Concomitant]
  4. LEVOTHYROXINE SODIUM [Concomitant]
  5. ENALAPRIL MALEATE [Concomitant]
  6. VENLAFAXINE HCL [Concomitant]
  7. CLONAZEPAM [Concomitant]
  8. AMITRIPTYLINE HYDROCHLORIDE [Concomitant]
  9. METFORMIN HCL [Concomitant]
  10. PRAVASTATIN [Concomitant]
  11. FUROSEMIDE [Concomitant]

REACTIONS (7)
  - ABDOMINAL PAIN UPPER [None]
  - ANURIA [None]
  - CONDITION AGGRAVATED [None]
  - EOSINOPHILIA [None]
  - PAIN [None]
  - RASH [None]
  - RENAL IMPAIRMENT [None]
